FAERS Safety Report 21185529 (Version 4)
Quarter: 2023Q4

REPORT INFORMATION
  Report Type: Report from Study
  Country: TW (occurrence: None)
  Receive Date: 20220808
  Receipt Date: 20231005
  Transmission Date: 20240109
  Serious: Yes (Hospitalization)
  Sender: FDA-Public Use
  Company Number: TW-ROCHE-2762306

PATIENT
  Age: 53 Year
  Sex: Female
  Weight: 105 kg

DRUGS (5)
  1. ATEZOLIZUMAB [Suspect]
     Active Substance: ATEZOLIZUMAB
     Indication: Triple negative breast cancer
     Dosage: DATE OF MOST RECENT DOSE OF ATEZOLIZUMAB PRIOR TO AE ONSET 11/JAN/2021 AT THE DOSE OF 840 MG
     Route: 042
     Dates: start: 20200819
  2. PACLITAXEL [Suspect]
     Active Substance: PACLITAXEL
     Indication: Triple negative breast cancer
     Dosage: ON 18/NOV/2020, MOST RECENT DOSE OF PACLITAXEL PRIOR TO AE AND SAE ONSET WAS 184.8.
     Route: 042
     Dates: start: 20200819
  3. DOXORUBICIN [Suspect]
     Active Substance: DOXORUBICIN
     Indication: Triple negative breast cancer
     Dosage: DATE OF MOST RECENT DOSE(136.2 MG) OF DOXORUBICIN PRIOR TO AE ONSET 25/NOV/2020, 11/JAN/2021
     Route: 042
     Dates: start: 20201125
  4. CYCLOPHOSPHAMIDE [Suspect]
     Active Substance: CYCLOPHOSPHAMIDE
     Indication: Triple negative breast cancer
     Dosage: DATE OF MOST RECENT DOSE(1362 MG) OF CYCLOPHOSPHAMIDE PRIOR TO AE ONSET 25/NOV/2020, 11/JAN/2021
     Route: 042
     Dates: start: 20201125
  5. PEGFILGRASTIM [Suspect]
     Active Substance: PEGFILGRASTIM
     Indication: Triple negative breast cancer
     Dosage: SUBSEQUENT DOSE ON 11/DEC/2020, 13/JAN/2021
     Route: 058
     Dates: start: 20201127

REACTIONS (4)
  - Diabetic ketoacidosis [Recovered/Resolved]
  - Adrenal insufficiency [Recovered/Resolved]
  - Hyperglycaemia [Recovered/Resolved]
  - Hyperkalaemia [Recovered/Resolved]

NARRATIVE: CASE EVENT DATE: 20210127
